FAERS Safety Report 15964345 (Version 1)
Quarter: 2019Q1

REPORT INFORMATION
  Report Type: Spontaneous
  Country: US (occurrence: US)
  Receive Date: 20190215
  Receipt Date: 20190215
  Transmission Date: 20190417
  Serious: Yes (Hospitalization, Other)
  Sender: FDA-Public Use
  Company Number: US-AUROBINDO-AUR-APL-2019-008312

PATIENT

DRUGS (3)
  1. LORAZEPAM. [Concomitant]
     Active Substance: LORAZEPAM
     Indication: PRODUCT USED FOR UNKNOWN INDICATION
     Dosage: UNK
     Route: 065
  2. HALOPERIDOL. [Concomitant]
     Active Substance: HALOPERIDOL
     Indication: PRODUCT USED FOR UNKNOWN INDICATION
     Dosage: UNK
     Route: 065
  3. OLANZAPINE. [Suspect]
     Active Substance: OLANZAPINE
     Indication: PSYCHOTIC DISORDER
     Dosage: 10 MILLIGRAM
     Route: 065

REACTIONS (7)
  - Echopraxia [Recovering/Resolving]
  - Waxy flexibility [Recovering/Resolving]
  - Staring [Recovering/Resolving]
  - Posturing [Recovering/Resolving]
  - Disease progression [Recovering/Resolving]
  - Systemic lupus erythematosus [Recovering/Resolving]
  - Catatonia [Recovered/Resolved]
